FAERS Safety Report 4640624-X (Version None)
Quarter: 2005Q2

REPORT INFORMATION
  Report Type: 
  Country: None (occurrence: None)
  Receive Date: 20050419
  Receipt Date: 20050406
  Transmission Date: 20051028
  Serious: Yes (Other)
  Sender: FDA-Public Use
  Company Number: 2005057343

PATIENT
  Age: 25 Year
  Sex: Male

DRUGS (1)
  1. SOLU-MEDROL [Suspect]
     Indication: SPINAL HAEMATOMA
     Dosage: 2 GRAM, INTRAVENOUS
     Route: 042

REACTIONS (6)
  - ARRHYTHMIA [None]
  - BASEDOW'S DISEASE [None]
  - CONDITION AGGRAVATED [None]
  - HYPOKALAEMIA [None]
  - TACHYCARDIA [None]
  - VENTRICULAR FIBRILLATION [None]
